FAERS Safety Report 13230179 (Version 1)
Quarter: 2017Q1

REPORT INFORMATION
  Report Type: Spontaneous
  Country: CA (occurrence: US)
  Receive Date: 20170214
  Receipt Date: 20170214
  Transmission Date: 20170428
  Serious: Yes (Hospitalization)
  Sender: FDA-Public Use
  Company Number: None

PATIENT
  Age: 14 Year
  Sex: Male
  Weight: 31.8 kg

DRUGS (6)
  1. PREDNISONE. [Suspect]
     Active Substance: PREDNISONE
     Dates: end: 20170202
  2. ONCASPAR [Suspect]
     Active Substance: PEGASPARGASE
     Dates: end: 20170123
  3. METHOTREXATE. [Suspect]
     Active Substance: METHOTREXATE
     Dates: end: 20170127
  4. DAUNORUBICIN [Suspect]
     Active Substance: DAUNORUBICIN
     Dates: end: 20170127
  5. CYTARABINE. [Suspect]
     Active Substance: CYTARABINE
     Dates: end: 20170201
  6. VINCRISTINE SULFATE. [Suspect]
     Active Substance: VINCRISTINE SULFATE
     Dates: end: 20170127

REACTIONS (6)
  - Pyrexia [None]
  - Philadelphia chromosome positive [None]
  - Weight decreased [None]
  - Sepsis [None]
  - Decreased appetite [None]
  - Bacterial infection [None]

NARRATIVE: CASE EVENT DATE: 20170208
